FAERS Safety Report 5242924-1 (Version None)
Quarter: 2007Q1

REPORT INFORMATION
  Report Type: 
  Country: None (occurrence: None)
  Receive Date: 20070215
  Receipt Date: 20070202
  Transmission Date: 20070707
  Serious: Yes (Hospitalization)
  Sender: FDA-Public Use
  Company Number: 2007BI001235

PATIENT
  Age: 33 Year
  Sex: Female
  Weight: 53.5244 kg

DRUGS (2)
  1. NATALIZUMAB [Suspect]
     Indication: MULTIPLE SCLEROSIS
     Dosage: 300 MG; QM; IV
     Route: 042
     Dates: start: 20061005
  2. CYMBALTA [Concomitant]

REACTIONS (1)
  - NEPHROLITHIASIS [None]
